FAERS Safety Report 9543550 (Version 4)
Quarter: 2014Q2

REPORT INFORMATION
  Report Type: Spontaneous
  Country: GB (occurrence: GB)
  Receive Date: 20130923
  Receipt Date: 20140620
  Transmission Date: 20141212
  Serious: Yes (Other)
  Sender: FDA-Public Use
  Company Number: US-MSD-1207GBR002376

PATIENT
  Age: 57 Year
  Sex: Male
  Weight: 91 kg

DRUGS (34)
  1. REMERON [Suspect]
     Indication: DEPRESSION
     Dosage: 45 MG, DAILY
     Route: 048
     Dates: start: 20090601
  2. REMERON [Suspect]
     Indication: INSOMNIA
     Dosage: 30 MG, DAILY
     Route: 048
     Dates: start: 20090601
  3. REMERON [Suspect]
     Indication: SELF-INJURIOUS IDEATION
  4. DIVALPROEX SODIUM [Concomitant]
     Indication: CONVULSION
     Dosage: 5000 MG, QD
     Route: 048
     Dates: start: 19720304
  5. DIVALPROEX SODIUM [Concomitant]
     Indication: BIPOLAR DISORDER
  6. DIVALPROEX SODIUM [Concomitant]
     Indication: CLUSTER HEADACHE
  7. CLOBAZAM [Concomitant]
     Indication: CONVULSION
     Dosage: 30 MG, QD
     Dates: start: 19911003
  8. CLOBAZAM [Concomitant]
     Indication: TINNITUS
  9. PRIMIDONE [Concomitant]
     Indication: CONVULSION
     Dosage: 1000 MG, QD
     Route: 048
     Dates: start: 19950604, end: 20090826
  10. PHENYTOIN [Concomitant]
     Indication: CONVULSION
     Dosage: 600 MG DAILY
     Route: 048
     Dates: start: 19940427, end: 20130428
  11. NITROGLYCERIN [Concomitant]
     Indication: MYOCARDIAL ISCHAEMIA
     Dosage: 0.4 MG, PRN
     Dates: start: 19950904
  12. CLOPIDOGREL [Concomitant]
     Indication: ANTICOAGULANT THERAPY
     Dosage: 75 MG, UNK
     Route: 048
     Dates: start: 19960706
  13. AMLODIPINE [Concomitant]
     Indication: MYOCARDIAL ISCHAEMIA
     Dosage: 10 MG, QD
     Route: 048
     Dates: start: 19970410
  14. RANITIDINE [Concomitant]
     Indication: GASTROOESOPHAGEAL REFLUX DISEASE
     Dosage: 300 MG, UNK
     Route: 048
     Dates: start: 19980305, end: 20110203
  15. METOCLOPRAMIDE [Concomitant]
     Indication: GASTROOESOPHAGEAL REFLUX DISEASE
     Dosage: 40 MG, QD
     Route: 048
     Dates: start: 19980701, end: 20110115
  16. ANUSOL (PRAMOXINE HYDROCHLORIDE (+) ZINC OXIDE) [Concomitant]
     Indication: PRURITUS
     Dosage: 1 %, PRN
     Dates: start: 19980701
  17. ANUSOL (PRAMOXINE HYDROCHLORIDE (+) ZINC OXIDE) [Concomitant]
     Indication: HAEMORRHOIDS
  18. SUDOCREM [Concomitant]
     Indication: RASH
     Dosage: 1 OTHER AS NEEDED
     Route: 061
     Dates: start: 20000701, end: 2000
  19. SUDOCREM [Concomitant]
     Dosage: 1 OTHER AS NEEDED
     Route: 061
     Dates: start: 20000630
  20. ZOLPIDEM TARTRATE [Concomitant]
     Indication: INSOMNIA
     Dosage: 25 MG, UNK
     Route: 048
     Dates: start: 20010218, end: 20090825
  21. SIMVASTATIN [Concomitant]
     Indication: BLOOD CHOLESTEROL INCREASED
     Dosage: 5 MG, QD
     Route: 048
     Dates: start: 20050705
  22. CANESTEN HC [Concomitant]
     Indication: PRURITUS GENERALISED
     Dosage: 2 OTHER AS NEEDED
     Dates: start: 20080701
  23. CANESTEN HC [Concomitant]
     Dosage: 2 OTHER AS NEEDED
     Dates: start: 20080630
  24. AMLODIPINE BESYLATE (+) BENAZEPRIL HYDROCHLORIDE [Concomitant]
     Indication: HYPERTENSION
     Dosage: 5 MG - 10 MG, QD
     Route: 048
     Dates: start: 20081015, end: 20120430
  25. SEROQUEL [Concomitant]
     Indication: AGITATION
     Dosage: 75 MG, QD
     Route: 048
     Dates: start: 20090415
  26. SEROQUEL [Concomitant]
     Indication: HALLUCINATION, AUDITORY
  27. SEROQUEL [Concomitant]
     Indication: SELF-INJURIOUS IDEATION
  28. SEROQUEL [Concomitant]
     Indication: BIPOLAR DISORDER
  29. HALOPERIDOL [Concomitant]
     Indication: SCHIZOTYPAL PERSONALITY DISORDER
     Dosage: 10 MG, PRN
     Dates: start: 20090509, end: 20090827
  30. URISTAT [Concomitant]
  31. FYBOGEL [Concomitant]
  32. DILANTIN [Concomitant]
     Indication: TINNITUS
     Dosage: 800 MG, DAILY
     Route: 048
     Dates: start: 19920630, end: 20130315
  33. DILANTIN [Concomitant]
     Indication: CONVULSION
  34. HYDROCORTISONE [Concomitant]
     Indication: GUTTATE PSORIASIS
     Dosage: 1 OTHER DAILY
     Dates: start: 20080630

REACTIONS (21)
  - Thrombotic thrombocytopenic purpura [Unknown]
  - Dry mouth [Unknown]
  - Bipolar disorder [Unknown]
  - Cataract [Unknown]
  - Idiopathic pulmonary fibrosis [Unknown]
  - Circadian rhythm sleep disorder [Unknown]
  - Delayed sleep phase [Unknown]
  - Diverticulum [Unknown]
  - Schizotypal personality disorder [Unknown]
  - Polydipsia [Unknown]
  - Ataxia [Unknown]
  - Dyspraxia [Unknown]
  - Dehydration [Unknown]
  - Insomnia [Unknown]
  - Somnolence [Unknown]
  - Fibromyalgia [Unknown]
  - Bursitis [Unknown]
  - Thrombotic thrombocytopenic purpura [Unknown]
  - Cluster headache [Unknown]
  - Dry eye [Unknown]
  - Oesophageal achalasia [Unknown]
